FAERS Safety Report 26069733 (Version 1)
Quarter: 2025Q4

REPORT INFORMATION
  Report Type: Spontaneous
  Country: US (occurrence: US)
  Receive Date: 20251120
  Receipt Date: 20251120
  Transmission Date: 20260118
  Serious: No
  Sender: CATALYST PHARMA
  Company Number: US-CATALYST PHARMACEUTICALS-US-CATA-25-01229

PATIENT
  Age: 5 Year
  Sex: Male
  Weight: 18.594 kg

DRUGS (2)
  1. AGAMREE [Suspect]
     Active Substance: VAMOROLONE
     Indication: Duchenne muscular dystrophy
     Dosage: 2.8 ML BY MOUTH DAILY
     Route: 048
     Dates: start: 20250301
  2. Pro-nutrients vitamin D3 [Concomitant]
     Indication: Hypovitaminosis
     Dosage: 1000 UNITS, DAILY
     Route: 048

REACTIONS (1)
  - Insomnia [Not Recovered/Not Resolved]

NARRATIVE: CASE EVENT DATE: 20250701
